FAERS Safety Report 26135932 (Version 1)
Quarter: 2025Q4

REPORT INFORMATION
  Report Type: Other
  Country: EU (occurrence: EU)
  Receive Date: 20251209
  Receipt Date: 20251209
  Transmission Date: 20260118
  Serious: Yes (Life-Threatening, Hospitalization)
  Sender: Atnahs Healthcare
  Company Number: None

PATIENT

DRUGS (5)
  1. DIAZEPAM [Suspect]
     Active Substance: DIAZEPAM
     Indication: Poisoning deliberate
     Dosage: 300 MG
     Route: 048
     Dates: start: 20251103, end: 20251103
  2. CYAMEMAZINE [Suspect]
     Active Substance: CYAMEMAZINE
     Indication: Poisoning deliberate
     Dosage: 3000 MG (120 CP DE 25 MG)
     Route: 048
     Dates: start: 20251103, end: 20251103
  3. ARIPIPRAZOLE [Suspect]
     Active Substance: ARIPIPRAZOLE
     Indication: Poisoning deliberate
     Dosage: 840 MG (56 CP DE 15 MG)
     Route: 048
     Dates: start: 20251103, end: 20251103
  4. CHLORPROMAZINE [Suspect]
     Active Substance: CHLORPROMAZINE
     Indication: Poisoning deliberate
     Dosage: 6500 MG (65 CP DE 100 MG)
     Route: 048
     Dates: start: 20251103, end: 20251103
  5. LOXAPINE [Suspect]
     Active Substance: LOXAPINE
     Indication: Poisoning deliberate
     Dosage: 1250 MG (50 CP DE 25 MG)
     Route: 048
     Dates: start: 20251103, end: 20251103

REACTIONS (4)
  - Coma [Recovered/Resolved]
  - Poisoning deliberate [Recovered/Resolved]
  - Atelectasis [Recovered/Resolved]
  - Pneumonia aspiration [Recovered/Resolved]

NARRATIVE: CASE EVENT DATE: 20251103
